FAERS Safety Report 16364542 (Version 1)
Quarter: 2019Q2

REPORT INFORMATION
  Report Type: Spontaneous
  Country: US (occurrence: US)
  Receive Date: 20190528
  Receipt Date: 20190528
  Transmission Date: 20190711
  Serious: No
  Sender: FDA-Public Use
  Company Number: US-ASTRAZENECA-2019SE67168

PATIENT
  Sex: Female

DRUGS (1)
  1. BYDUREON [Suspect]
     Active Substance: EXENATIDE
     Dosage: 2.0MG UNKNOWN
     Route: 065

REACTIONS (6)
  - Somnolence [Unknown]
  - Product dispensing issue [Unknown]
  - Injection site erythema [Not Recovered/Not Resolved]
  - Fatigue [Unknown]
  - Injection site pruritus [Not Recovered/Not Resolved]
  - Injection site mass [Not Recovered/Not Resolved]
